FAERS Safety Report 15201906 (Version 1)
Quarter: 2018Q3

REPORT INFORMATION
  Report Type: Report from Study
  Country: EG (occurrence: EG)
  Receive Date: 20180726
  Receipt Date: 20180726
  Transmission Date: 20181010
  Serious: Yes (Other)
  Sender: FDA-Public Use
  Company Number: PHHY2018EG052123

PATIENT
  Age: 50 Year
  Sex: Male

DRUGS (1)
  1. TASIGNA [Suspect]
     Active Substance: NILOTINIB
     Indication: CHRONIC MYELOID LEUKAEMIA
     Dosage: 800 MG, QD
     Route: 048
     Dates: start: 2015, end: 2016

REACTIONS (8)
  - Angina pectoris [Recovering/Resolving]
  - Back pain [Recovering/Resolving]
  - Concomitant disease aggravated [Recovering/Resolving]
  - Intracardiac thrombus [Recovering/Resolving]
  - White blood cell count decreased [Recovering/Resolving]
  - Diabetes mellitus [Recovering/Resolving]
  - Neck pain [Recovering/Resolving]
  - Depression [Recovering/Resolving]

NARRATIVE: CASE EVENT DATE: 2016
